FAERS Safety Report 8565710-3 (Version None)
Quarter: 2012Q3

REPORT INFORMATION
  Report Type: 
  Country: None (occurrence: None)
  Receive Date: 20120803
  Receipt Date: 20111215
  Transmission Date: 20120928
  Serious: No
  Sender: FDA-Public Use
  Company Number: US-ABBOTT-11P-163-0883726-00

PATIENT
  Sex: Male
  Weight: 60.382 kg

DRUGS (1)
  1. NIASPAN [Suspect]
     Indication: BLOOD CHOLESTEROL ABNORMAL
     Dates: start: 20070101

REACTIONS (3)
  - PRURITUS [None]
  - ERYTHEMA [None]
  - FLUSHING [None]
